FAERS Safety Report 24640556 (Version 1)
Quarter: 2024Q4

REPORT INFORMATION
  Report Type: Spontaneous
  Country: JP (occurrence: JP)
  Receive Date: 20241120
  Receipt Date: 20241120
  Transmission Date: 20250115
  Serious: Yes (Other)
  Sender: SUNOVION
  Company Number: JP-SMPA-2024SPA005239

PATIENT

DRUGS (1)
  1. RELUGOLIX [Suspect]
     Active Substance: RELUGOLIX
     Indication: Uterine leiomyoma
     Dosage: 40 MG
     Route: 048

REACTIONS (3)
  - Diabetes mellitus [Unknown]
  - Glycosylated haemoglobin increased [Not Recovered/Not Resolved]
  - Hypertension [Unknown]
